FAERS Safety Report 8952320 (Version 1)
Quarter: 2012Q4

REPORT INFORMATION
  Report Type: 
  Country: BR (occurrence: BR)
  Receive Date: 20121205
  Receipt Date: 20121205
  Transmission Date: 20130627
  Serious: Yes (Other)
  Sender: FDA-Public Use
  Company Number: BR-ACCORD-015406

PATIENT
  Age: 57 Year
  Sex: Female
  Weight: 91.4 kg

DRUGS (9)
  1. LORAZEPAM [Concomitant]
  2. METOCLOPRAMIDE [Concomitant]
     Route: 042
     Dates: start: 20121108, end: 20121108
  3. CAPTOPRIL [Concomitant]
     Route: 048
  4. RANITIDINE [Concomitant]
     Route: 042
     Dates: start: 20121108, end: 20121108
  5. DIPHENHYDRAMINE [Concomitant]
     Route: 042
     Dates: start: 20121108, end: 20121108
  6. NIFEDIPINE [Concomitant]
  7. ONDANSETRON [Concomitant]
     Route: 042
     Dates: start: 20121108, end: 20121108
  8. DEXAMETHASONE [Concomitant]
     Route: 042
     Dates: start: 20121108, end: 20121108
  9. PACLITAXEL [Suspect]
     Indication: CHEMOTHERAPY
     Dosage: Second cycle
     Route: 042
     Dates: start: 20121108, end: 20121108

REACTIONS (2)
  - Hyperaemia [Recovered/Resolved]
  - Dyspnoea [Recovered/Resolved]
